FAERS Safety Report 10068526 (Version 2)
Quarter: 2014Q2

REPORT INFORMATION
  Report Type: Spontaneous
  Country: DE (occurrence: DE)
  Receive Date: 20140409
  Receipt Date: 20140520
  Transmission Date: 20141212
  Serious: Yes (Hospitalization)
  Sender: FDA-Public Use
  Company Number: DE-MERZ PHARMACEUTICALS, LLC DRUG SAFETY-14MRZ-00158

PATIENT
  Age: 48 Year
  Sex: Female

DRUGS (1)
  1. AETHOXYSKLEROL [Suspect]
     Indication: VASCULAR MALFORMATION
     Route: 026
     Dates: start: 20140310, end: 20140311

REACTIONS (13)
  - Burning sensation [None]
  - Cardiovascular disorder [None]
  - Agitation [None]
  - Photopsia [None]
  - Erythema [None]
  - Scintillating scotoma [None]
  - Paraesthesia [None]
  - Tremor [None]
  - Muscle twitching [None]
  - Pruritus generalised [None]
  - Off label use [None]
  - Dizziness [None]
  - Fibrin D dimer increased [None]
